FAERS Safety Report 7860416-8 (Version None)
Quarter: 2011Q4

REPORT INFORMATION
  Report Type: 
  Country: None (occurrence: None)
  Receive Date: 20111027
  Receipt Date: 20111017
  Transmission Date: 20120403
  Serious: Yes (Death, Hospitalization, Other)
  Sender: FDA-Public Use
  Company Number: PHHY2011ZA88026

PATIENT
  Sex: Female

DRUGS (2)
  1. GLEEVEC [Suspect]
     Indication: CHRONIC MYELOID LEUKAEMIA
     Dosage: 600 MG, UNK
  2. GLEEVEC [Suspect]
     Dosage: 400 MG, UNK

REACTIONS (11)
  - DEATH [None]
  - PETECHIAE [None]
  - HAEMOGLOBIN DECREASED [None]
  - MOUTH HAEMORRHAGE [None]
  - NEUTROPENIA [None]
  - PLATELET COUNT DECREASED [None]
  - ECCHYMOSIS [None]
  - PYREXIA [None]
  - PANCYTOPENIA [None]
  - ORAL INFECTION [None]
  - PNEUMONIA [None]
